FAERS Safety Report 10501752 (Version 1)
Quarter: 2014Q4

REPORT INFORMATION
  Report Type: Spontaneous
  Country: US (occurrence: US)
  Receive Date: 20141007
  Receipt Date: 20141007
  Transmission Date: 20150528
  Serious: Yes (Hospitalization, Other)
  Sender: FDA-Public Use
  Company Number: US-GLAXOSMITHKLINE-A1090996A

PATIENT
  Age: 57 Year
  Sex: Female

DRUGS (10)
  1. ATROVENT [Concomitant]
     Active Substance: IPRATROPIUM BROMIDE
  2. SERTRALINE [Concomitant]
     Active Substance: SERTRALINE HYDROCHLORIDE
  3. PROMETHAZINE [Concomitant]
     Active Substance: PROMETHAZINE\PROMETHAZINE HYDROCHLORIDE
  4. BUPROPION XL [Concomitant]
     Active Substance: BUPROPION
  5. LISINOPRIL. [Concomitant]
     Active Substance: LISINOPRIL
  6. ADVAIR HFA [Suspect]
     Active Substance: FLUTICASONE PROPIONATE\SALMETEROL XINAFOATE
     Indication: LYMPHANGIOLEIOMYOMATOSIS
     Dosage: 1 DF, UNK
     Dates: start: 2004
  7. LORTAB [Concomitant]
     Active Substance: ACETAMINOPHEN\HYDROCODONE BITARTRATE
  8. METOPROLOL [Concomitant]
     Active Substance: METOPROLOL
  9. SPIRIVA [Concomitant]
     Active Substance: TIOTROPIUM BROMIDE MONOHYDRATE
  10. XANAX [Concomitant]
     Active Substance: ALPRAZOLAM

REACTIONS (10)
  - Panic reaction [Unknown]
  - Vomiting [Unknown]
  - Blood count abnormal [Unknown]
  - Allergic cough [Unknown]
  - Heart valve incompetence [Unknown]
  - Condition aggravated [Unknown]
  - Colitis ulcerative [Unknown]
  - Dyspnoea [Unknown]
  - Malaise [Unknown]
  - Heart rate increased [Unknown]

NARRATIVE: CASE EVENT DATE: 2011
